FAERS Safety Report 8179157 (Version 3)
Quarter: 2013Q3

REPORT INFORMATION
  Report Type: Spontaneous
  Country: NL (occurrence: NL)
  Receive Date: 20111013
  Receipt Date: 20130814
  Transmission Date: 20140515
  Serious: Yes (Hospitalization)
  Sender: FDA-Public Use
  Company Number: NL-AMGEN-NLDSP2011052402

PATIENT
  Age: 79 Year
  Sex: Female
  Weight: 47.99 kg

DRUGS (20)
  1. NEUPOGEN [Suspect]
     Indication: DIFFUSE LARGE B-CELL LYMPHOMA
     Dosage: 6 MG, Q2WK, (DAY 2 OF A 14 DAY CYCLE), (DOSAGE FORM: SOLUTION FOR INJECTION)
     Route: 058
     Dates: start: 20110907
  2. RITUXIMAB [Suspect]
     Indication: DIFFUSE LARGE B-CELL LYMPHOMA
     Dosage: 540 MG, Q2WK
     Route: 042
     Dates: start: 20110906
  3. PREDNISONE [Suspect]
     Indication: DIFFUSE LARGE B-CELL LYMPHOMA
     Dosage: 100 MG, (10 MG (DAYS 1 TO 5 AS PER PROTOCOL)), (DOSAGE FORM: UNSPECIFIED)
     Route: 048
     Dates: start: 20110901
  4. PREDNISONE [Suspect]
     Dosage: 50 MG, (10 MG (DAYS 1 TO 5 AS PER PROTOCOL)), (DOSAGE FORM: UNSPECIFIED)
     Route: 048
     Dates: start: 20110911
  5. PREDNISONE [Suspect]
     Dosage: 25 MG, (10 MG (DAYS 1 TO 5 AS PER PROTOCOL)), (DOSAGE FORM: UNSPECIFIED)
     Route: 048
     Dates: start: 20110912
  6. PREDNISONE [Suspect]
     Dosage: 10 MG, (10 MG (DAYS 1 TO 5 AS PER PROTOCOL)), (DOSAGE FORM: UNSPECIFIED)
     Route: 048
     Dates: start: 20110913
  7. CYCLOPHOSPHAMIDE [Suspect]
     Indication: DIFFUSE LARGE B-CELL LYMPHOMA
     Dosage: 1070 MG, Q2WK (DOSAGE FORM: UNKNOWN)
     Route: 042
     Dates: start: 20110906
  8. DOXORUBICIN [Suspect]
     Indication: DIFFUSE LARGE B-CELL LYMPHOMA
     Dosage: 70 MG, Q2WK (DOSAGE FORM: LIPOSOME INJECTION)
     Route: 042
     Dates: start: 20110906
  9. VINCRISTINE [Suspect]
     Indication: DIFFUSE LARGE B-CELL LYMPHOMA
     Dosage: 2 MG, Q2WK (DOSAGE FORM: UNKNOWN), 2 MG ON DAY 1 OF A 14 DAY CYCLE
     Route: 042
     Dates: start: 20110906
  10. CO-TRIMOXAZOLE [Concomitant]
     Indication: PROPHYLAXIS
     Dosage: UNK, (DOSAGE FORM: UNSPECIFIED)
     Route: 054
  11. VALACICLOVIR [Concomitant]
     Indication: PROPHYLAXIS
     Dosage: 500 MG, UNK
     Route: 054
     Dates: start: 20110915, end: 20110915
  12. ASCAL                              /00002702/ [Concomitant]
     Indication: TRANSIENT ISCHAEMIC ATTACK
     Dosage: 100 MG, UNK
     Route: 048
     Dates: start: 20000101
  13. NEXIUM                             /01479302/ [Concomitant]
     Indication: GASTRITIS
     Dosage: 40 MG, UNK
     Route: 048
     Dates: start: 20090101, end: 20110914
  14. GRANISETRON [Concomitant]
     Indication: NAUSEA
     Dosage: 1 MG, UNK
     Route: 054
     Dates: start: 20110912, end: 20110915
  15. METFORMIN [Concomitant]
     Indication: DIABETES MELLITUS
     Dosage: 500 MG, UNK, (DOSAGE FORM: UNSPECIFIED)
     Route: 054
     Dates: start: 20110908, end: 20110915
  16. MOVICOLON [Concomitant]
     Indication: CONSTIPATION
     Dosage: 14 G, UNK, (DOSAGE FORM: UNSPECIFIED)
     Route: 054
     Dates: start: 20110901, end: 20110915
  17. METOCLOPRAMIDE [Concomitant]
     Indication: NAUSEA
     Dosage: 20 MG, UNK, (DOSAGE FORM: UNSPECIFIED)
     Route: 054
     Dates: end: 20110915
  18. SULFAMETHOXAZOLE [Concomitant]
     Dosage: UNK, (DOSAGE FORM: UNSPECIFIED)
     Route: 048
     Dates: start: 20110915
  19. CARBASALATE CALCIUM [Concomitant]
     Dosage: UNK, (DOSAGE FORM: UNSPECIFIED)
     Route: 048
     Dates: start: 20000101, end: 20110915
  20. ESOMEPRAZOLE [Concomitant]
     Dosage: UNK, (DOSAGE FORM: UNSPECIFIED)
     Route: 048
     Dates: start: 20090101, end: 20110915

REACTIONS (2)
  - Hypophosphataemia [Unknown]
  - Muscular weakness [Recovered/Resolved]
